FAERS Safety Report 6635928-5 (Version None)
Quarter: 2010Q1

REPORT INFORMATION
  Report Type: 
  Country: None (occurrence: None)
  Receive Date: 20100225
  Receipt Date: 20090723
  Transmission Date: 20100710
  Serious: Yes (Other)
  Sender: FDA-Public Use
  Company Number: US-JNJFOC-20090702571

PATIENT
  Sex: Female

DRUGS (2)
  1. IBUPROFEN [Suspect]
     Indication: ARTHRITIS
  2. CHANTIX [Suspect]
     Indication: DRUG USE FOR UNKNOWN INDICATION

REACTIONS (1)
  - EPISTAXIS [None]
